FAERS Safety Report 7985291-2 (Version None)
Quarter: 2011Q4

REPORT INFORMATION
  Report Type: 
  Country: None (occurrence: None)
  Receive Date: 20111216
  Receipt Date: 20111205
  Transmission Date: 20120403
  Serious: Yes (Other)
  Sender: FDA-Public Use
  Company Number: CN-ROCHE-1004894

PATIENT

DRUGS (2)
  1. XELODA [Suspect]
     Indication: GASTRIC CANCER
     Route: 048
  2. OXALIPLATIN [Suspect]
     Indication: GASTRIC CANCER
     Route: 041

REACTIONS (5)
  - GASTROOESOPHAGEAL REFLUX DISEASE [None]
  - POST GASTRIC SURGERY SYNDROME [None]
  - THROMBOCYTOPENIA [None]
  - STASIS SYNDROME [None]
  - CACHEXIA [None]
